FAERS Safety Report 22297431 (Version 1)
Quarter: 2023Q2

REPORT INFORMATION
  Report Type: Spontaneous
  Country: FR (occurrence: FR)
  Receive Date: 20230509
  Receipt Date: 20230509
  Transmission Date: 20230721
  Serious: Yes (Hospitalization)
  Sender: FDA-Public Use
  Company Number: None

PATIENT
  Age: 4 Year
  Sex: Male
  Weight: 18 kg

DRUGS (1)
  1. KEPPRA [Suspect]
     Active Substance: LEVETIRACETAM
     Indication: Epilepsy
     Dosage: 1000 MILLIGRAM, 2X/12 HOURS
     Route: 048
     Dates: start: 20230227, end: 20230404

REACTIONS (2)
  - Incorrect dose administered [Unknown]
  - Aggression [Unknown]

NARRATIVE: CASE EVENT DATE: 20230227
